FAERS Safety Report 8614698 (Version 3)
Quarter: 2014Q1

REPORT INFORMATION
  Report Type: Spontaneous
  Country: US (occurrence: US)
  Receive Date: 20120614
  Receipt Date: 20140122
  Transmission Date: 20141002
  Serious: No
  Sender: FDA-Public Use
  Company Number: US-ASTRAZENECA-2012SE36136

PATIENT
  Age: 45 Year
  Sex: Female
  Weight: 73.5 kg

DRUGS (25)
  1. NEXIUM [Suspect]
     Indication: GASTROOESOPHAGEAL REFLUX DISEASE
     Route: 048
  2. NEXIUM [Suspect]
     Indication: GASTROOESOPHAGEAL REFLUX DISEASE
     Route: 048
  3. NEXIUM [Suspect]
     Indication: GASTROOESOPHAGEAL REFLUX DISEASE
     Dosage: 1 PER DAY
     Route: 048
     Dates: start: 2003, end: 2008
  4. NEXIUM [Suspect]
     Indication: GASTROOESOPHAGEAL REFLUX DISEASE
     Dosage: 1 PER DAY
     Route: 048
     Dates: start: 2003, end: 2008
  5. NEXIUM [Suspect]
     Indication: GASTROOESOPHAGEAL REFLUX DISEASE
     Route: 048
     Dates: end: 2010
  6. NEXIUM [Suspect]
     Indication: GASTROOESOPHAGEAL REFLUX DISEASE
     Route: 048
     Dates: end: 2010
  7. NEXIUM [Suspect]
     Indication: GASTROOESOPHAGEAL REFLUX DISEASE
     Route: 048
     Dates: start: 20070205
  8. NEXIUM [Suspect]
     Indication: GASTROOESOPHAGEAL REFLUX DISEASE
     Route: 048
     Dates: start: 20070205
  9. NEXIUM [Suspect]
     Indication: GASTROOESOPHAGEAL REFLUX DISEASE
     Route: 048
     Dates: start: 200702, end: 200907
  10. NEXIUM [Suspect]
     Indication: GASTROOESOPHAGEAL REFLUX DISEASE
     Route: 048
     Dates: start: 200702, end: 200907
  11. MAALOX [Concomitant]
  12. XANAX [Concomitant]
     Dates: start: 20070227
  13. XANAX [Concomitant]
     Dates: start: 20121205
  14. VIT.D [Concomitant]
  15. VIT.C [Concomitant]
  16. MAGNESIUM [Concomitant]
  17. ACIDOPHOLOS [Concomitant]
  18. RANITIDINE [Concomitant]
     Dates: start: 20070109
  19. CLIDINIUM [Concomitant]
     Dosage: 2.5 -5 MG
     Dates: start: 20070109
  20. METRONIDAZOLE [Concomitant]
     Dates: start: 20070605
  21. BALLADONNA-PHENOBARBITAL [Concomitant]
     Dates: start: 20090710
  22. NITROFURANTOIN [Concomitant]
     Dates: start: 20090619
  23. VALTREX [Concomitant]
     Dates: start: 20091001
  24. ZEGERID [Concomitant]
     Dosage: 40MG-1.1 G
     Dates: start: 20091013
  25. MECLIZINE [Concomitant]
     Dates: start: 20101207

REACTIONS (7)
  - Osteoporosis [Unknown]
  - Multiple fractures [Unknown]
  - Arthropathy [Unknown]
  - Osteopenia [Unknown]
  - Vitamin D deficiency [Unknown]
  - Malaise [Unknown]
  - Abdominal pain [Unknown]
